FAERS Safety Report 25808782 (Version 4)
Quarter: 2025Q4

REPORT INFORMATION
  Report Type: Report from Study
  Country: CH (occurrence: CH)
  Receive Date: 20250916
  Receipt Date: 20251023
  Transmission Date: 20260117
  Serious: Yes (Other)
  Sender: ABBVIE
  Company Number: CH-ABBVIE-6442348

PATIENT
  Age: 71 Year
  Sex: Male

DRUGS (2)
  1. CARBIDOPA\LEVODOPA [Suspect]
     Active Substance: CARBIDOPA\LEVODOPA
     Indication: Parkinson^s disease
     Dosage: MORNING DOSE 9 ML, CRD 3.8 ML/H, EXTRA DOSE 2 ML.
     Route: 050
  2. CARBIDOPA\LEVODOPA [Suspect]
     Active Substance: CARBIDOPA\LEVODOPA

REACTIONS (9)
  - Glaucoma [Unknown]
  - Stoma site discharge [Recovering/Resolving]
  - Device breakage [Recovered/Resolved]
  - Stoma site hypergranulation [Not Recovered/Not Resolved]
  - Stoma site pain [Recovering/Resolving]
  - Stoma site reaction [Unknown]
  - Stoma site induration [Unknown]
  - Stoma site erythema [Unknown]
  - Fistula discharge [Unknown]

NARRATIVE: CASE EVENT DATE: 20250101
